FAERS Safety Report 8607204 (Version 2)
Quarter: 2013Q3

REPORT INFORMATION
  Report Type: Spontaneous
  Country: US (occurrence: US)
  Receive Date: 20120611
  Receipt Date: 20130906
  Transmission Date: 20140515
  Serious: Yes (Hospitalization, Disabling)
  Sender: FDA-Public Use
  Company Number: US-ASTRAZENECA-2012SE34565

PATIENT
  Age: 46 Year
  Sex: Female

DRUGS (15)
  1. NEXIUM [Suspect]
     Indication: GASTROOESOPHAGEAL REFLUX DISEASE
     Route: 048
     Dates: start: 2002, end: 201203
  2. NEXIUM [Suspect]
     Indication: DYSPHONIA
     Route: 048
     Dates: start: 2002, end: 201203
  3. NEXIUM [Suspect]
     Indication: GASTROOESOPHAGEAL REFLUX DISEASE
     Route: 048
     Dates: start: 20100308
  4. NEXIUM [Suspect]
     Indication: DYSPHONIA
     Route: 048
     Dates: start: 20100308
  5. NEXIUM [Suspect]
     Indication: GASTROOESOPHAGEAL REFLUX DISEASE
     Route: 048
     Dates: start: 20041123
  6. NEXIUM [Suspect]
     Indication: DYSPHONIA
     Route: 048
     Dates: start: 20041123
  7. MAALOX [Concomitant]
  8. TUMS [Concomitant]
  9. GABAPENTIN [Concomitant]
     Dosage: TAKE 1 AT BEDTIME FOR 7 DAYS, THEN 1 TWICE A DAY FOR 7 DAYS , THEN
     Route: 065
  10. PREDNISONE [Concomitant]
     Dosage: 6 TAB ONCE DAILY FOR 2 DAYS THEN 5 TABLETS ONCE
     Dates: start: 20110503
  11. METHYLPREDNISOLONE [Concomitant]
     Dates: start: 20060323
  12. CLARINEX [Concomitant]
     Dates: start: 20060721
  13. SINGULAIR [Concomitant]
     Route: 048
     Dates: start: 20080502
  14. AVELOX [Concomitant]
     Route: 048
  15. MISOPROSTOL [Concomitant]
     Route: 048
     Dates: start: 20101026

REACTIONS (12)
  - Osteoarthritis [Unknown]
  - Osteoporosis [Unknown]
  - Abdominal distension [Unknown]
  - Ankle fracture [Unknown]
  - Hand fracture [Unknown]
  - Bone pain [Unknown]
  - Arthritis [Unknown]
  - Diarrhoea [Unknown]
  - Osteopenia [Unknown]
  - Exostosis [Unknown]
  - Arthralgia [Unknown]
  - Osteitis [Unknown]
